FAERS Safety Report 5168273-8 (Version None)
Quarter: 2006Q4

REPORT INFORMATION
  Report Type: 
  Country: None (occurrence: None)
  Receive Date: 20061208
  Receipt Date: 20061129
  Transmission Date: 20070319
  Serious: Yes (Other)
  Sender: FDA-Public Use
  Company Number: JP-BRISTOL-MYERS SQUIBB COMPANY-13601240

PATIENT
  Age: 63 Year
  Sex: Male

DRUGS (2)
  1. MITOMYCIN-C BULK POWDER [Suspect]
     Route: 042
     Dates: start: 20041001, end: 20041001
  2. PEPLEO [Suspect]
     Indication: PREMEDICATION
     Route: 042
     Dates: start: 20040901, end: 20040901

REACTIONS (1)
  - ACUTE MYELOID LEUKAEMIA [None]
